FAERS Safety Report 15361683 (Version 1)
Quarter: 2018Q3

REPORT INFORMATION
  Report Type: Spontaneous
  Country: US (occurrence: US)
  Receive Date: 20180831
  Receipt Date: 20180831
  Transmission Date: 20181010
  Serious: No
  Sender: FDA-Public Use
  Company Number: None

PATIENT
  Sex: Male

DRUGS (1)
  1. ATROVENT HFA [Suspect]
     Active Substance: IPRATROPIUM BROMIDE

REACTIONS (1)
  - Drug ineffective [None]
